FAERS Safety Report 10864242 (Version 1)
Quarter: 2015Q1

REPORT INFORMATION
  Report Type: Spontaneous
  Country: US (occurrence: US)
  Receive Date: 20150223
  Receipt Date: 20150223
  Transmission Date: 20150721
  Serious: No
  Sender: FDA-Public Use
  Company Number: US-TEVA-541984USA

PATIENT
  Age: 32 Year
  Sex: Female

DRUGS (1)
  1. COPAXONE [Suspect]
     Active Substance: GLATIRAMER ACETATE
     Route: 058

REACTIONS (6)
  - Chills [Recovered/Resolved]
  - Flushing [Recovered/Resolved]
  - Exposure during breast feeding [Unknown]
  - Painful respiration [Recovered/Resolved]
  - Influenza like illness [Recovered/Resolved]
  - Chest discomfort [Recovered/Resolved]
